FAERS Safety Report 8432322-1 (Version None)
Quarter: 2012Q2

REPORT INFORMATION
  Report Type: 
  Country: None (occurrence: None)
  Receive Date: 20120613
  Receipt Date: 20120608
  Transmission Date: 20120825
  Serious: Yes (Other)
  Sender: FDA-Public Use
  Company Number: PHHY2012JP035958

PATIENT
  Age: 71 Year
  Sex: Male

DRUGS (2)
  1. DIOVAN [Suspect]
     Route: 048
  2. EXFORGE [Suspect]
     Dosage: 1 DF, DAILY
     Route: 048

REACTIONS (2)
  - BLOOD ANTIDIURETIC HORMONE INCREASED [None]
  - INAPPROPRIATE ANTIDIURETIC HORMONE SECRETION [None]
